FAERS Safety Report 9629318 (Version 1)
Quarter: 2013Q4

REPORT INFORMATION
  Report Type: Spontaneous
  Country: US (occurrence: US)
  Receive Date: 20131017
  Receipt Date: 20131017
  Transmission Date: 20140711
  Serious: No
  Sender: FDA-Public Use
  Company Number: US-ASTRAZENECA-2013SE65941

PATIENT
  Age: 80 Year
  Sex: Female
  Weight: 68 kg

DRUGS (6)
  1. ATENOLOL [Suspect]
     Indication: CARDIAC DISORDER
     Route: 048
  2. PRILOSEC [Suspect]
     Indication: CARDIAC DISORDER
     Route: 048
  3. CRESTOR [Suspect]
     Indication: BLOOD CHOLESTEROL ABNORMAL
     Route: 048
     Dates: end: 20130821
  4. TAMBOCOR [Concomitant]
     Indication: CARDIAC DISORDER
  5. ASPIRIN [Concomitant]
  6. LORAZEPAM [Concomitant]

REACTIONS (6)
  - Pain [Not Recovered/Not Resolved]
  - Myalgia [Not Recovered/Not Resolved]
  - Pain in extremity [Not Recovered/Not Resolved]
  - Hypothyroidism [Unknown]
  - Cardiac disorder [Unknown]
  - Insomnia [Unknown]
